FAERS Safety Report 16033030 (Version 2)
Quarter: 2020Q1

REPORT INFORMATION
  Report Type: Spontaneous
  Country: US (occurrence: US)
  Receive Date: 20190305
  Receipt Date: 20200303
  Transmission Date: 20200409
  Serious: No
  Sender: FDA-Public Use
  Company Number: US-IMPAX LABORATORIES, LLC-2018-IPXL-02220

PATIENT
  Sex: Male

DRUGS (2)
  1. RYTARY [Suspect]
     Active Substance: CARBIDOPA\LEVODOPA
     Indication: PRODUCT USED FOR UNKNOWN INDICATION
     Dosage: 2 DOSAGE FORM, QID
     Route: 048
  2. RYTARY [Suspect]
     Active Substance: CARBIDOPA\LEVODOPA
     Dosage: 2 DOSAGE FORM, QID (AM, NOON, 4PM, AND 8PM)
     Route: 048
     Dates: start: 2018

REACTIONS (5)
  - Fall [Unknown]
  - Therapeutic product effect decreased [Unknown]
  - Sleep disorder [Unknown]
  - Drug ineffective [Unknown]
  - Somnolence [Unknown]

NARRATIVE: CASE EVENT DATE: 2018
